FAERS Safety Report 4842472-4 (Version None)
Quarter: 2005Q4

REPORT INFORMATION
  Report Type: 
  Country: None (occurrence: None)
  Receive Date: 20051129
  Receipt Date: 20051110
  Transmission Date: 20060501
  Serious: Yes (Death)
  Sender: FDA-Public Use
  Company Number: US200511000671

PATIENT
  Age: 48 Year
  Sex: Female

DRUGS (1)
  1. XIGRIS(DROTRECOGIN ALFA (ACTIVATED) UNKNOWN FORMULATION) UNKNOWN [Suspect]
     Dosage: 24 UG/KG/HR

REACTIONS (2)
  - HAEMORRHAGE INTRACRANIAL [None]
  - PROCEDURAL COMPLICATION [None]
